FAERS Safety Report 10132181 (Version 3)
Quarter: 2014Q2

REPORT INFORMATION
  Report Type: Spontaneous
  Country: JP (occurrence: JP)
  Receive Date: 20140428
  Receipt Date: 20140627
  Transmission Date: 20141212
  Serious: Yes (Hospitalization)
  Sender: FDA-Public Use
  Company Number: JP-NOVOPROD-399048

PATIENT
  Age: 36 Year
  Sex: Female
  Weight: 80 kg

DRUGS (6)
  1. TRESIBA CHU FLEXTOUCH [Suspect]
     Indication: TYPE 2 DIABETES MELLITUS
     Dosage: 8 U, QD
     Route: 058
     Dates: start: 20130518
  2. TRESIBA CHU FLEXTOUCH [Suspect]
     Dosage: UNK
     Route: 058
  3. TRESIBA CHU FLEXTOUCH [Suspect]
     Dosage: 40 U, QD
     Route: 058
     Dates: start: 201312
  4. NOVORAPID CHU FLEXPEN [Suspect]
     Indication: TYPE 2 DIABETES MELLITUS
     Dosage: 3SHOTS PER DAY
     Route: 058
     Dates: start: 20131001
  5. NOVORAPID CHU FLEXPEN [Suspect]
     Dosage: UNK
     Route: 058
  6. NOVORAPID CHU FLEXPEN [Suspect]
     Dosage: 10-18-14 U PER DAY
     Route: 058
     Dates: start: 201312

REACTIONS (3)
  - Threatened labour [Recovered/Resolved]
  - Diabetes mellitus inadequate control [Recovered/Resolved]
  - Exposure during pregnancy [Recovered/Resolved]
